FAERS Safety Report 25581570 (Version 1)
Quarter: 2025Q3

REPORT INFORMATION
  Report Type: Report from Study
  Country: CA (occurrence: CA)
  Receive Date: 20250719
  Receipt Date: 20250719
  Transmission Date: 20251021
  Serious: Yes (Other)
  Sender: CELLTRION
  Company Number: CA-CELLTRION INC.-2025CA005903

PATIENT

DRUGS (1)
  1. INFLIXIMAB-DYYB [Suspect]
     Active Substance: INFLIXIMAB-DYYB
     Indication: Crohn^s disease
     Dosage: 240MG SC Q2WEEKS
     Route: 058
     Dates: start: 20240920

REACTIONS (4)
  - Haematochezia [Unknown]
  - Abdominal pain upper [Unknown]
  - Injection site swelling [Unknown]
  - Overdose [Unknown]
